FAERS Safety Report 8608643-6 (Version None)
Quarter: 2012Q3

REPORT INFORMATION
  Report Type: 
  Country: None (occurrence: None)
  Receive Date: 20120809
  Receipt Date: 20120809
  Transmission Date: 20120928
  Serious: Yes (Disabling)
  Sender: FDA-Public Use
  Company Number: None

PATIENT
  Age: 64 Year
  Sex: Female
  Weight: 84.1 kg

DRUGS (1)
  1. RIBAVIRIN [Suspect]
     Indication: HEPATITIS C
     Dosage: 200MG BID PO
     Route: 048
     Dates: start: 20120721, end: 20120724

REACTIONS (3)
  - HYPERURICAEMIA [None]
  - RENAL FAILURE ACUTE [None]
  - DIALYSIS [None]
